FAERS Safety Report 17101747 (Version 3)
Quarter: 2020Q1

REPORT INFORMATION
  Report Type: Spontaneous
  Country: US (occurrence: US)
  Receive Date: 20191202
  Receipt Date: 20200203
  Transmission Date: 20200409
  Serious: Yes (Hospitalization, Other)
  Sender: FDA-Public Use
  Company Number: US-SHIRE-US201941003

PATIENT
  Sex: Female
  Weight: 86.17 kg

DRUGS (1)
  1. XIIDRA [Suspect]
     Active Substance: LIFITEGRAST
     Indication: PRODUCT USED FOR UNKNOWN INDICATION
     Dosage: 1 DROP, 2X/DAY:BID
     Route: 047
     Dates: start: 20180725

REACTIONS (4)
  - Fall [Unknown]
  - Spinal fracture [Unknown]
  - Product supply issue [Unknown]
  - Inappropriate schedule of product administration [Unknown]
